FAERS Safety Report 11627134 (Version 1)
Quarter: 2015Q4

REPORT INFORMATION
  Report Type: Report from Study
  Country: US (occurrence: US)
  Receive Date: 20151013
  Receipt Date: 20151013
  Transmission Date: 20160304
  Serious: No
  Sender: FDA-Public Use
  Company Number: US-AMGEN-USASL2014077485

PATIENT
  Age: 47 Year
  Sex: Female

DRUGS (10)
  1. XELODA [Suspect]
     Active Substance: CAPECITABINE
     Dosage: 4 PO, BID
     Route: 048
  2. XELODA [Suspect]
     Active Substance: CAPECITABINE
     Dosage: 4674 MG 1-14 DAYS
     Route: 048
  3. ATROPINE SULPHATE [Concomitant]
     Active Substance: ATROPINE SULFATE
     Dosage: 0.25 MG, UNK
  4. XELODA [Suspect]
     Active Substance: CAPECITABINE
     Indication: COLON CANCER
     Dosage: 1000 MG (500 MG - 2 IN 1 D)
     Route: 048
  5. CPT-11 [Concomitant]
     Active Substance: IRINOTECAN
     Dosage: 460 MG, UNK
     Route: 042
  6. AVASTIN [Suspect]
     Active Substance: BEVACIZUMAB
     Dosage: 1823 MG, UNK
     Route: 042
  7. NEUPOGEN [Suspect]
     Active Substance: FILGRASTIM
     Indication: PRODUCT USED FOR UNKNOWN INDICATION
     Dosage: 480 MUG, UNK
     Route: 058
  8. AVASTIN [Suspect]
     Active Substance: BEVACIZUMAB
     Indication: COLON CANCER
     Dosage: 1721 MG, UNK
     Route: 042
  9. DEXAMETHASONE. [Concomitant]
     Active Substance: DEXAMETHASONE
     Dosage: 20 MG, UNK
     Route: 040
  10. ATROPINE SULPHATE [Concomitant]
     Active Substance: ATROPINE SULFATE
     Dosage: 1 MG, UNK

REACTIONS (6)
  - Decreased appetite [Unknown]
  - Paraesthesia [Unknown]
  - Nasal congestion [Unknown]
  - Oropharyngeal pain [Unknown]
  - Fatigue [Unknown]
  - Flatulence [Unknown]
